FAERS Safety Report 18004093 (Version 6)
Quarter: 2021Q1

REPORT INFORMATION
  Report Type: Report from Study
  Country: CZ (occurrence: CZ)
  Receive Date: 20200710
  Receipt Date: 20210311
  Transmission Date: 20210419
  Serious: Yes (Hospitalization)
  Sender: FDA-Public Use
  Company Number: CZ-CLOVIS ONCOLOGY-CLO-2020-001251

PATIENT

DRUGS (24)
  1. RUCAPARIB [Suspect]
     Active Substance: RUCAPARIB
     Dosage: 200 MG, BID
     Route: 048
     Dates: start: 20200819
  2. IBUPROFEN. [Concomitant]
     Active Substance: IBUPROFEN
     Indication: PYREXIA
     Dosage: UNK
     Dates: start: 20200601, end: 20200610
  3. FRAXIPARINE [Concomitant]
     Active Substance: NADROPARIN CALCIUM
     Indication: THROMBOSIS PROPHYLAXIS
     Dosage: UNK
     Dates: start: 20200605, end: 20200614
  4. CIPROFLOXACIN. [Concomitant]
     Active Substance: CIPROFLOXACIN
     Indication: FEBRILE NEUTROPENIA
     Dosage: UNK
     Dates: start: 20200610, end: 20200614
  5. METRONIDAZOL                       /00012501/ [Concomitant]
     Active Substance: METRONIDAZOLE
     Indication: FEBRILE NEUTROPENIA
     Dosage: UNK
     Dates: start: 20200610, end: 20200614
  6. KALIUM CHLORATUM [Concomitant]
     Active Substance: POTASSIUM CHLORIDE
     Indication: HYPOKALAEMIA
     Dosage: UNK
     Dates: start: 20200614, end: 20200615
  7. NIVOLUMAB [Suspect]
     Active Substance: NIVOLUMAB
     Indication: OVARIAN CANCER
     Dosage: 480 MG, ONCE
     Route: 042
     Dates: start: 20200521, end: 20200521
  8. CEFTRIAXON [Concomitant]
     Active Substance: CEFTRIAXONE
     Indication: FEBRILE NEUTROPENIA
     Dosage: UNK
     Dates: start: 20200603, end: 20200610
  9. PARACETAMOL [Concomitant]
     Active Substance: ACETAMINOPHEN
     Indication: PYREXIA
     Dosage: UNK
     Dates: start: 20200610, end: 20200612
  10. PREDNISON [Concomitant]
     Active Substance: PREDNISONE
     Indication: FEBRILE NEUTROPENIA
     Dosage: UNK
     Dates: start: 20200610, end: 20200625
  11. NOVALGIN (METAMIZOLE SODIUM) [Concomitant]
     Active Substance: METAMIZOLE SODIUM
     Indication: SPONDYLITIS
     Dosage: UNK
     Dates: start: 20200613, end: 20200613
  12. HYLAK                              /00710901/ [Concomitant]
     Indication: ANTIBIOTIC PROPHYLAXIS
     Dosage: UNK
     Dates: start: 20200615
  13. PARALEN                            /00020001/ [Concomitant]
     Indication: PYREXIA
     Dosage: UNK
     Dates: start: 20200705, end: 20200705
  14. RUCAPARIB [Suspect]
     Active Substance: RUCAPARIB
     Indication: OVARIAN CANCER
     Dosage: 600 MG, BID
     Route: 048
     Dates: start: 20200423
  15. MICARDIS [Concomitant]
     Active Substance: TELMISARTAN
     Indication: HYPERTENSION
     Dosage: UNK
     Dates: start: 2012
  16. MYCOMAX [Concomitant]
     Active Substance: FLUCONAZOLE
     Indication: FEBRILE NEUTROPENIA
     Dosage: UNK
     Dates: start: 20200601, end: 20200607
  17. PLASMALYTE [Concomitant]
     Active Substance: ELECTROLYTES NOS
     Indication: FEBRILE NEUTROPENIA
     Dosage: UNK
     Dates: start: 20200601, end: 20200613
  18. NEURITOGEN [Concomitant]
     Active Substance: DIETARY SUPPLEMENT\HERBALS
     Indication: NEUROPATHY PERIPHERAL
     Dosage: UNK
     Dates: start: 201911
  19. ZARZIO [Concomitant]
     Active Substance: FILGRASTIM
     Indication: FEBRILE NEUTROPENIA
     Dosage: UNK
     Dates: start: 20200601, end: 20200613
  20. IBUPROFEN. [Concomitant]
     Active Substance: IBUPROFEN
     Indication: HEADACHE
  21. PARACETAMOL [Concomitant]
     Active Substance: ACETAMINOPHEN
     Indication: HEADACHE
     Dosage: UNK
     Dates: start: 20200624
  22. RUCAPARIB [Suspect]
     Active Substance: RUCAPARIB
     Dosage: 500 MG, BID
     Route: 048
     Dates: end: 20200706
  23. NEUROL                             /00595201/ [Concomitant]
     Active Substance: ALPRAZOLAM
     Indication: INSOMNIA
     Dosage: UNK
     Dates: start: 20200605, end: 20200614
  24. FRAXIPARINE [Concomitant]
     Active Substance: NADROPARIN CALCIUM
     Dosage: UNK
     Dates: start: 20200702, end: 20200702

REACTIONS (1)
  - Febrile neutropenia [Recovered/Resolved]

NARRATIVE: CASE EVENT DATE: 20200707
